FAERS Safety Report 20336072 (Version 1)
Quarter: 2022Q1

REPORT INFORMATION
  Report Type: Other
  Country: TH (occurrence: None)
  Receive Date: 20220114
  Receipt Date: 20220114
  Transmission Date: 20220423
  Serious: Yes (Hospitalization, Other)
  Sender: FDA-Public Use
  Company Number: TH-Neopharma Inc-000469

PATIENT
  Sex: Male

DRUGS (2)
  1. AMOXICILLIN\CLAVULANIC ACID [Suspect]
     Active Substance: AMOXICILLIN\CLAVULANIC ACID
     Indication: Burkholderia pseudomallei infection
     Dosage: START DAY 01- END DAY 06
  2. CEFTRIAXONE [Suspect]
     Active Substance: CEFTRIAXONE
     Indication: Burkholderia pseudomallei infection
     Dosage: END DAY 01

REACTIONS (3)
  - Burkholderia pseudomallei infection [Unknown]
  - Infection reactivation [Unknown]
  - Drug resistance [Unknown]
